FAERS Safety Report 19901059 (Version 1)
Quarter: 2021Q3

REPORT INFORMATION
  Report Type: Spontaneous
  Country: FR (occurrence: FR)
  Receive Date: 20210930
  Receipt Date: 20210930
  Transmission Date: 20211014
  Serious: Yes (Other)
  Sender: FDA-Public Use
  Company Number: FR-MYLANLABS-2021M1067621

PATIENT
  Age: 33 Year
  Sex: Female

DRUGS (4)
  1. FLUOROURACIL. [Suspect]
     Active Substance: FLUOROURACIL
     Indication: PANCREATOBLASTOMA
     Dosage: 4 CYCLES BETWEEN FEBRUARY 2020 AND APRIL 2020 FOLLOWED BY 4 MORE CYCLES...
     Route: 065
     Dates: start: 202002
  2. IRINOTECAN [Suspect]
     Active Substance: IRINOTECAN
     Indication: PANCREATOBLASTOMA
     Dosage: 4 CYCLES BETWEEN FEBRUARY 2020 AND APRIL 2020 FOLLOWED BY 4 MORE CYCLES..
     Route: 065
     Dates: start: 202002
  3. OXALIPLATIN. [Suspect]
     Active Substance: OXALIPLATIN
     Indication: PANCREATOBLASTOMA
     Dosage: 4 CYCLES BETWEEN FEBRUARY 2020 AND APRIL 2020 FOLLOWED BY 4 MORE CYCLES..
     Route: 065
     Dates: start: 202002
  4. FOLINIC ACID [Suspect]
     Active Substance: LEUCOVORIN
     Indication: PANCREATOBLASTOMA
     Dosage: 4 CYCLES BETWEEN FEBRUARY 2020 AND APRIL 2020 FOLLOWED BY 4 MORE CYCLES..
     Route: 065
     Dates: start: 202002

REACTIONS (2)
  - Asthenia [Unknown]
  - Thrombocytopenia [Unknown]
